FAERS Safety Report 12092779 (Version 1)
Quarter: 2016Q1

REPORT INFORMATION
  Report Type: Other
  Country: GB (occurrence: GB)
  Receive Date: 20160219
  Receipt Date: 20160219
  Transmission Date: 20160526
  Serious: Yes (Hospitalization, Other)
  Sender: FDA-Public Use
  Company Number: GB-SHIRE-GB201601509

PATIENT
  Sex: Female

DRUGS (2)
  1. CINRYZE [Suspect]
     Active Substance: HUMAN C1-ESTERASE INHIBITOR
     Indication: PROPHYLAXIS
  2. CINRYZE [Suspect]
     Active Substance: HUMAN C1-ESTERASE INHIBITOR
     Indication: HEREDITARY ANGIOEDEMA
     Dosage: 1000 UNITS, AS REQ^D
     Route: 042

REACTIONS (8)
  - Hyperhidrosis [Unknown]
  - Dizziness [Unknown]
  - Loss of consciousness [Unknown]
  - Vision blurred [Unknown]
  - Hypoacusis [Unknown]
  - Nausea [Unknown]
  - Infusion related reaction [Unknown]
  - Product use issue [Not Recovered/Not Resolved]
